FAERS Safety Report 5956667-X (Version None)
Quarter: 2008Q4

REPORT INFORMATION
  Report Type: 
  Country: None (occurrence: None)
  Receive Date: 20081117
  Receipt Date: 20081117
  Transmission Date: 20090506
  Serious: Yes (Hospitalization, Disabling)
  Sender: FDA-Public Use
  Company Number: None

PATIENT
  Age: 31 Year
  Sex: Male
  Weight: 68.0396 kg

DRUGS (3)
  1. CHANTIX [Suspect]
     Indication: SMOKING CESSATION THERAPY
     Dates: start: 20071001, end: 20071101
  2. WELLBUTRIN [Concomitant]
  3. LUNESTA [Concomitant]

REACTIONS (7)
  - DEPRESSION [None]
  - FATIGUE [None]
  - INSOMNIA [None]
  - LIVER FUNCTION TEST ABNORMAL [None]
  - NIGHTMARE [None]
  - PARANOIA [None]
  - SUICIDE ATTEMPT [None]
